FAERS Safety Report 24466414 (Version 1)
Quarter: 2024Q4

REPORT INFORMATION
  Report Type: Spontaneous
  Country: CN (occurrence: CN)
  Receive Date: 20241018
  Receipt Date: 20241018
  Transmission Date: 20250115
  Serious: Yes (Hospitalization)
  Sender: PFIZER
  Company Number: CN-PFIZER INC-PV202400134633

PATIENT
  Age: 82 Year
  Sex: Male

DRUGS (1)
  1. VORICONAZOLE [Suspect]
     Active Substance: VORICONAZOLE
     Indication: Pneumonia
     Dosage: 200 MG, 2X/DAY
     Route: 041
     Dates: start: 20240906, end: 20240909

REACTIONS (3)
  - Mental disorder [Recovering/Resolving]
  - Hallucination [Recovering/Resolving]
  - Hallucination, visual [Recovering/Resolving]

NARRATIVE: CASE EVENT DATE: 20240907
